FAERS Safety Report 9201023 (Version 1)
Quarter: 2013Q1

REPORT INFORMATION
  Report Type: Spontaneous
  Country: US (occurrence: None)
  Receive Date: 20130327
  Receipt Date: 20130327
  Transmission Date: 20140127
  Serious: Yes (Disabling, Other)
  Sender: FDA-Public Use
  Company Number: US-1197193

PATIENT
  Sex: Female

DRUGS (2)
  1. TOBRADEX OPHTHALMIC SUSPENSION (TOBRADEX SUSPENSION) [Suspect]
     Route: 047
  2. REFRESH TEARS LUBRICANT [Concomitant]

REACTIONS (5)
  - Optic nerve disorder [None]
  - Intraocular pressure increased [None]
  - Conjunctivitis infective [None]
  - Eye inflammation [None]
  - Drug ineffective [None]
